FAERS Safety Report 16531739 (Version 1)
Quarter: 2019Q3

REPORT INFORMATION
  Report Type: Spontaneous
  Country: CN (occurrence: CN)
  Receive Date: 20190705
  Receipt Date: 20190705
  Transmission Date: 20191004
  Serious: Yes (Hospitalization, Disabling, Other)
  Sender: FDA-Public Use
  Company Number: CN-PFIZER INC-2019281175

PATIENT
  Age: 53 Year
  Sex: Female
  Weight: 65 kg

DRUGS (3)
  1. PACLITAXEL. [Suspect]
     Active Substance: PACLITAXEL
     Indication: OVARIAN NEOPLASM
     Dosage: 240 MG, 1X/DAY
     Route: 041
     Dates: start: 201902, end: 20190527
  2. NUO XIN [Suspect]
     Active Substance: CISPLATIN
     Indication: OVARIAN NEOPLASM
     Dosage: 110 MG, 1X/DAY
     Route: 041
     Dates: start: 201902, end: 20190527
  3. SODIUM CHLORIDE. [Concomitant]
     Active Substance: SODIUM CHLORIDE
     Indication: VEHICLE SOLUTION USE
     Dosage: 500 ML, 2X/DAY
     Route: 041
     Dates: start: 201902, end: 20190527

REACTIONS (9)
  - Hepatocellular injury [Recovering/Resolving]
  - Cholecystitis chronic [Recovering/Resolving]
  - Asthenia [Recovering/Resolving]
  - Drug-induced liver injury [Recovering/Resolving]
  - Chromaturia [Recovering/Resolving]
  - HBV-DNA polymerase increased [Recovering/Resolving]
  - Fatigue [Recovered/Resolved]
  - Nausea [Recovered/Resolved]
  - Total bile acids increased [Recovering/Resolving]

NARRATIVE: CASE EVENT DATE: 201906
